FAERS Safety Report 7543527-6 (Version None)
Quarter: 2011Q2

REPORT INFORMATION
  Report Type: 
  Country: None (occurrence: None)
  Receive Date: 20110613
  Receipt Date: 20010910
  Transmission Date: 20111010
  Serious: Yes (Hospitalization)
  Sender: FDA-Public Use
  Company Number: PHBS2001JP09083

PATIENT
  Sex: Male

DRUGS (10)
  1. BUFFERIN [Concomitant]
  2. BASEN [Concomitant]
  3. AMLODIPINE [Concomitant]
  4. KINEDAK [Concomitant]
  5. ISOSORBIDE DINITRATE [Concomitant]
  6. MAGNESIUM OXIDE [Concomitant]
  7. WARFARIN SODIUM [Concomitant]
  8. ENALAPRIL MALEATE [Concomitant]
  9. NATEGLINIDE [Suspect]
     Dosage: 180 MG/DAY
     Route: 048
     Dates: start: 20010525
  10. MIYA BM [Concomitant]

REACTIONS (2)
  - HAEMOPTYSIS [None]
  - CHEST X-RAY ABNORMAL [None]
